FAERS Safety Report 13153049 (Version 1)
Quarter: 2017Q1

REPORT INFORMATION
  Report Type: Spontaneous
  Country: CA (occurrence: CA)
  Receive Date: 20170126
  Receipt Date: 20170126
  Transmission Date: 20170428
  Serious: Yes (Other)
  Sender: FDA-Public Use
  Company Number: CA-TEVA-732636ACC

PATIENT
  Age: 30 Year
  Sex: Female

DRUGS (2)
  1. TEVA-DIVALPROEX [Suspect]
     Active Substance: DIVALPROEX SODIUM
     Indication: BIPOLAR DISORDER
     Dosage: 500 MILLIGRAM DAILY;
     Route: 048
  2. NOVO-DIVALPROEX [Suspect]
     Active Substance: DIVALPROEX SODIUM
     Indication: BIPOLAR DISORDER
     Dosage: 250 MILLIGRAM DAILY;
     Route: 048

REACTIONS (7)
  - Confusional state [Unknown]
  - Depression [Unknown]
  - Dizziness [Unknown]
  - Suicidal ideation [Unknown]
  - Eating disorder [Unknown]
  - Tremor [Unknown]
  - Hyperhidrosis [Unknown]
